FAERS Safety Report 10313061 (Version 2)
Quarter: 2014Q3

REPORT INFORMATION
  Report Type: Spontaneous
  Country: US (occurrence: US)
  Receive Date: 20140718
  Receipt Date: 20140804
  Transmission Date: 20150326
  Serious: Yes (Other)
  Sender: FDA-Public Use
  Company Number: US-MERCK-1407USA004908

PATIENT
  Age: 56 Year
  Sex: Male

DRUGS (2)
  1. ISENTRESS [Suspect]
     Active Substance: RALTEGRAVIR POTASSIUM
     Indication: HIV INFECTION
     Dosage: 400 MG, TWICE DAILY
     Route: 048
     Dates: start: 2012
  2. TENOFOVIR [Concomitant]
     Active Substance: TENOFOVIR

REACTIONS (2)
  - Tonsil cancer [Not Recovered/Not Resolved]
  - Proteinuria [Unknown]

NARRATIVE: CASE EVENT DATE: 2014
